FAERS Safety Report 6601583-3 (Version None)
Quarter: 2010Q1

REPORT INFORMATION
  Report Type: 
  Country: None (occurrence: None)
  Receive Date: 20100225
  Receipt Date: 20091223
  Transmission Date: 20100710
  Serious: No
  Sender: FDA-Public Use
  Company Number: US-KINGPHARMUSA00001-K200901617

PATIENT
  Sex: Female
  Weight: 65.76 kg

DRUGS (3)
  1. FLECTOR [Suspect]
     Indication: SCIATICA
     Dosage: 1 PATCH, Q 12 HOURS PRN
     Route: 061
     Dates: start: 20091001
  2. FLECTOR [Suspect]
     Indication: BURSITIS
  3. SYNTHROID [Concomitant]
     Dosage: UNK

REACTIONS (1)
  - DRUG INEFFECTIVE [None]
